FAERS Safety Report 17678064 (Version 2)
Quarter: 2020Q2

REPORT INFORMATION
  Report Type: Spontaneous
  Country: US (occurrence: US)
  Receive Date: 20200417
  Receipt Date: 20200624
  Transmission Date: 20200714
  Serious: No
  Sender: FDA-Public Use
  Company Number: US-GLENMARK PHARMACEUTICALS-2020GMK046275

PATIENT

DRUGS (1)
  1. IMIQUIMOD CREAM USP, 5% [Suspect]
     Active Substance: IMIQUIMOD
     Indication: PRECANCEROUS SKIN LESION
     Dosage: UNK, HS (ONCE AT NIGHT)
     Route: 061
     Dates: start: 20200131, end: 20200213

REACTIONS (5)
  - Product use in unapproved indication [Unknown]
  - Pruritus [Unknown]
  - Application site scar [Unknown]
  - Application site scab [Recovering/Resolving]
  - Product use issue [Unknown]

NARRATIVE: CASE EVENT DATE: 2020
